FAERS Safety Report 25392032 (Version 1)
Quarter: 2025Q2

REPORT INFORMATION
  Report Type: Spontaneous
  Country: US (occurrence: US)
  Receive Date: 20250603
  Receipt Date: 20250603
  Transmission Date: 20250716
  Serious: No
  Sender: PFIZER
  Company Number: US-PFIZER INC-202500113501

PATIENT
  Age: 65 Year
  Sex: Female
  Weight: 64.41 kg

DRUGS (1)
  1. PAXLOVID [Suspect]
     Active Substance: NIRMATRELVIR\RITONAVIR
     Indication: COVID-19 treatment
     Dosage: NIRMATRELVIR 300 MG / RITONAVIR 100 MG, 2X/DAY
     Route: 048
     Dates: start: 20250526, end: 20250601

REACTIONS (5)
  - Muscle spasms [Not Recovered/Not Resolved]
  - Gastrooesophageal reflux disease [Unknown]
  - Decreased appetite [Recovered/Resolved]
  - Abdominal pain [Unknown]
  - Inappropriate schedule of product administration [Unknown]

NARRATIVE: CASE EVENT DATE: 20250526
